FAERS Safety Report 7194524-4 (Version None)
Quarter: 2010Q4

REPORT INFORMATION
  Report Type: 
  Country: None (occurrence: None)
  Receive Date: 20101223
  Receipt Date: 20100922
  Transmission Date: 20110411
  Serious: No
  Sender: FDA-Public Use
  Company Number: US-AMGEN-TCS440392

PATIENT

DRUGS (2)
  1. ENBREL [Suspect]
     Indication: RHEUMATOID ARTHRITIS
     Dosage: 50 MG, QWK
     Route: 058
     Dates: start: 20000101
  2. ABATACEPT (BRISTOL-MYERS SQUIBB) [Concomitant]
     Dosage: UNK UNK, UNK
     Dates: start: 20090101

REACTIONS (2)
  - RHEUMATOID ARTHRITIS [None]
  - WHITE BLOOD CELL COUNT DECREASED [None]
